FAERS Safety Report 8460726-X (Version None)
Quarter: 2012Q2

REPORT INFORMATION
  Report Type: 
  Country: None (occurrence: None)
  Receive Date: 20120622
  Receipt Date: 20120619
  Transmission Date: 20120825
  Serious: No
  Sender: FDA-Public Use
  Company Number: US-PFIZER INC-2012147987

PATIENT
  Sex: Male
  Weight: 81.633 kg

DRUGS (3)
  1. EFFEXOR XR [Suspect]
     Indication: OBSESSIVE-COMPULSIVE DISORDER
     Dosage: 225 MG, 1X/DAY
     Route: 048
     Dates: start: 20120401
  2. LUVOX [Concomitant]
     Dosage: UNK
  3. XANAX [Concomitant]
     Indication: OBSESSIVE-COMPULSIVE DISORDER
     Dosage: UNK

REACTIONS (1)
  - CHROMATOPSIA [None]
